FAERS Safety Report 6908068-5 (Version None)
Quarter: 2010Q3

REPORT INFORMATION
  Report Type: 
  Country: None (occurrence: None)
  Receive Date: 20100805
  Receipt Date: 20100728
  Transmission Date: 20110219
  Serious: Yes (Death, Life-Threatening, Hospitalization)
  Sender: FDA-Public Use
  Company Number: DE-ELI_LILLY_AND_COMPANY-DE201007001890

PATIENT
  Sex: Female

DRUGS (26)
  1. PEMETREXED [Suspect]
     Indication: NON-SMALL CELL LUNG CANCER
     Dosage: 500 MG/M2, DAY 1 EVERY 21 DAYS
     Route: 042
     Dates: start: 20100610
  2. CISPLATIN [Suspect]
     Indication: NON-SMALL CELL LUNG CANCER
     Dosage: 75 MG/M2, DAY 1 EVERY 21 DAYS
     Route: 042
     Dates: start: 20100610
  3. BEVACIZUMAB [Suspect]
     Indication: NON-SMALL CELL LUNG CANCER
     Dosage: 7.5 MG/KG, DAY 1 EVERY 21 DAYS
     Route: 042
     Dates: start: 20100610
  4. FOLIC ACID [Concomitant]
     Indication: PROPHYLAXIS
     Dosage: UNK, UNKNOWN
     Dates: start: 20100601, end: 20100707
  5. VITAMIN B-12 [Concomitant]
     Indication: PROPHYLAXIS
     Dosage: UNK, UNKNOWN
     Dates: start: 20100610, end: 20100610
  6. DEXAMETHASONE [Concomitant]
     Indication: PROPHYLAXIS
     Dosage: UNK, UNKNOWN
     Dates: end: 20100702
  7. MCP [Concomitant]
     Indication: NAUSEA
     Dosage: UNK, UNK
     Dates: start: 20100611
  8. LORAZEPAM [Concomitant]
     Indication: PAIN
     Dates: start: 20100613
  9. LEVOTHYROXINE SODIUM [Concomitant]
     Dosage: 100 UG, UNKNOWN
     Route: 065
     Dates: start: 19880101
  10. ESTRADIOL [Concomitant]
     Dates: start: 19820101
  11. BISOPROLOL [Concomitant]
     Dates: start: 20100512
  12. NOVALGIN [Concomitant]
     Dates: start: 20100518
  13. AMITRIPTYLINE HCL [Concomitant]
     Dates: start: 20100527
  14. NULYTELY [Concomitant]
     Dates: start: 20100521
  15. ASPIRIN [Concomitant]
     Dates: start: 20100602
  16. PANTOZOL [Concomitant]
     Dates: start: 20100611
  17. TRAMAL [Concomitant]
     Dates: start: 20100611
  18. CIPRO [Concomitant]
     Dates: start: 20100610
  19. METAMIZOLE [Concomitant]
     Dates: start: 20100613
  20. ONDANSETRON [Concomitant]
     Dates: start: 20100610
  21. KALINOR [Concomitant]
     Dates: start: 20100613
  22. HYDROMORPHONE HCL [Concomitant]
     Dates: start: 20100614
  23. CAPROS [Concomitant]
     Indication: PAIN
     Dates: start: 20100616
  24. LAXOBERAL [Concomitant]
     Dates: start: 20100629
  25. TEPILTA [Concomitant]
     Dosage: UNK, UNK
     Dates: start: 20100701, end: 20100701
  26. FRESUBIN [Concomitant]
     Dates: start: 20100630

REACTIONS (3)
  - COMA [None]
  - DEHYDRATION [None]
  - PNEUMONIA ASPIRATION [None]
